FAERS Safety Report 24556960 (Version 1)
Quarter: 2024Q4

REPORT INFORMATION
  Report Type: Report from Study
  Country: AU (occurrence: AU)
  Receive Date: 20241028
  Receipt Date: 20241028
  Transmission Date: 20250114
  Serious: Yes (Hospitalization, Disabling, Other)
  Sender: IPSEN BIOPHARMACEUTICALS, INC.
  Company Number: AU-IPSEN Group, Research and Development-2019-13708

PATIENT
  Age: 64 Year
  Sex: Male

DRUGS (3)
  1. LANREOTIDE ACETATE [Suspect]
     Active Substance: LANREOTIDE ACETATE
     Indication: Carcinoid syndrome
     Dosage: DEEP SUBCUT
     Route: 058
     Dates: start: 2016
  2. LANREOTIDE ACETATE [Suspect]
     Active Substance: LANREOTIDE ACETATE
     Indication: Gastroenteropancreatic neuroendocrine tumour disease
  3. LANREOTIDE ACETATE [Suspect]
     Active Substance: LANREOTIDE ACETATE
     Indication: Product used for unknown indication
     Route: 058

REACTIONS (16)
  - Diarrhoea [Not Recovered/Not Resolved]
  - Gastrointestinal viral infection [Not Recovered/Not Resolved]
  - Constipation [Unknown]
  - Eructation [Unknown]
  - Urinary tract disorder [Not Recovered/Not Resolved]
  - Invasive ductal breast carcinoma [Not Recovered/Not Resolved]
  - Fatigue [Not Recovered/Not Resolved]
  - Dyspnoea [Not Recovered/Not Resolved]
  - Asthenia [Not Recovered/Not Resolved]
  - Fall [Not Recovered/Not Resolved]
  - Gastrointestinal infection [Recovering/Resolving]
  - Malignant neoplasm progression [Unknown]
  - Attention deficit hyperactivity disorder [Unknown]
  - Sciatica [Recovering/Resolving]
  - Wound haemorrhage [Recovered/Resolved]
  - Epistaxis [Recovering/Resolving]

NARRATIVE: CASE EVENT DATE: 20190721
